FAERS Safety Report 17467223 (Version 1)
Quarter: 2020Q1

REPORT INFORMATION
  Report Type: Report from Study
  Country: IT (occurrence: IT)
  Receive Date: 20200227
  Receipt Date: 20200227
  Transmission Date: 20200409
  Serious: Yes (Hospitalization)
  Sender: FDA-Public Use
  Company Number: IT-JNJFOC-20200224182

PATIENT
  Age: 61 Year
  Sex: Male

DRUGS (1)
  1. REMICADE [Suspect]
     Active Substance: INFLIXIMAB
     Indication: COLITIS ULCERATIVE
     Route: 042
     Dates: start: 20161201, end: 20170918

REACTIONS (3)
  - Colostomy [Recovered/Resolved with Sequelae]
  - Large intestinal stenosis [Recovered/Resolved with Sequelae]
  - Colectomy total [Recovered/Resolved with Sequelae]

NARRATIVE: CASE EVENT DATE: 20190116
